FAERS Safety Report 17289000 (Version 1)
Quarter: 2020Q1

REPORT INFORMATION
  Report Type: Spontaneous
  Country: US (occurrence: US)
  Receive Date: 20200120
  Receipt Date: 20200120
  Transmission Date: 20200409
  Serious: No
  Sender: FDA-Public Use
  Company Number: US-TEVA-2020-US-1170557

PATIENT
  Age: 76 Year
  Sex: Female
  Weight: 61.2 kg

DRUGS (11)
  1. CARBIDOPA/LEVODOPA [Concomitant]
     Active Substance: CARBIDOPA\LEVODOPA
     Route: 065
  2. MIRAPEX [Concomitant]
     Active Substance: PRAMIPEXOLE DIHYDROCHLORIDE
     Dosage: 6 MILLIGRAM DAILY; EXTENDED RELEASE
     Route: 065
     Dates: start: 201910, end: 2019
  3. MIRAPEX [Concomitant]
     Active Substance: PRAMIPEXOLE DIHYDROCHLORIDE
     Dosage: 6 MILLIGRAM DAILY;
     Route: 065
     Dates: start: 2019
  4. RASAGILINE. [Suspect]
     Active Substance: RASAGILINE
     Route: 065
     Dates: end: 201911
  5. GOCOVRI [Suspect]
     Active Substance: AMANTADINE
     Indication: PARKINSON^S DISEASE
     Dosage: 137 MILLIGRAM DAILY; AT BEDTIME
     Route: 048
     Dates: start: 20180326, end: 201804
  6. GOCOVRI [Suspect]
     Active Substance: AMANTADINE
     Dosage: 274 MILLIGRAM DAILY; AT BEDTIME
     Route: 048
     Dates: start: 20191218
  7. MIRAPEX [Concomitant]
     Active Substance: PRAMIPEXOLE DIHYDROCHLORIDE
     Route: 065
     Dates: end: 201910
  8. PANTOPRAZOLE [Concomitant]
     Active Substance: PANTOPRAZOLE
     Route: 065
  9. COQ10 [Concomitant]
     Active Substance: UBIDECARENONE
     Route: 065
  10. GOCOVRI [Suspect]
     Active Substance: AMANTADINE
     Dosage: 137 MILLIGRAM DAILY; AT BEDTIME
     Route: 048
     Dates: start: 201804
  11. LECITHIN [Concomitant]
     Active Substance: LECITHIN
     Route: 065

REACTIONS (3)
  - Tremor [Unknown]
  - Dry mouth [Recovering/Resolving]
  - Blood pressure increased [Recovering/Resolving]

NARRATIVE: CASE EVENT DATE: 201803
